FAERS Safety Report 15706484 (Version 2)
Quarter: 2018Q4

REPORT INFORMATION
  Report Type: Spontaneous
  Country: JP (occurrence: JP)
  Receive Date: 20181210
  Receipt Date: 20181224
  Transmission Date: 20190205
  Serious: Yes (Hospitalization)
  Sender: FDA-Public Use
  Company Number: JP-NOVOPROD-636042

PATIENT
  Age: 55 Year
  Sex: Male

DRUGS (14)
  1. BONALON [Concomitant]
     Active Substance: ALENDRONATE SODIUM
     Dosage: 35 MG, QD
     Route: 048
  2. THYRADIN S [Concomitant]
     Active Substance: LEVOTHYROXINE SODIUM
     Indication: AUTOIMMUNE THYROIDITIS
     Dosage: 25MCG/DAY
     Route: 048
  3. METFORMIN HYDROCHLORIDE. [Concomitant]
     Active Substance: METFORMIN HYDROCHLORIDE
     Indication: TYPE 1 DIABETES MELLITUS
     Dosage: 1250 MG, QD
     Route: 048
  4. KOLBET [Concomitant]
     Active Substance: IGURATIMOD
     Indication: DERMATOMYOSITIS
     Dosage: 25 MG, QD
     Route: 048
  5. SOLDEM [Concomitant]
     Active Substance: DEXTROSE\POTASSIUM CHLORIDE\SODIUM CHLORIDE\SODIUM LACTATE
     Dosage: 3A INFUSION SOLUTION WAS ADMINISTERED
     Dates: start: 20181124
  6. NOVORAPID [Suspect]
     Active Substance: INSULIN ASPART
     Dosage: 6 U, QD +(2 UNITS IN ADDITION) MORNING DOSE
     Route: 058
     Dates: start: 20181124
  7. ATELEC [Concomitant]
     Active Substance: CILNIDIPINE
     Indication: HYPERTENSION
     Dosage: 1 TAB, QD (1TAB (10MG)/DAY)
     Route: 048
  8. TRESIBA CHU FLEXTOUCH [Suspect]
     Active Substance: INSULIN DEGLUDEC
     Dosage: 10 U, QD (DECREASED TO 10 UNITS)
     Route: 058
  9. TRESIBA CHU FLEXTOUCH [Suspect]
     Active Substance: INSULIN DEGLUDEC
     Dosage: 14 U, QD
     Route: 058
     Dates: start: 20181128
  10. PREDNISOLONE. [Concomitant]
     Active Substance: PREDNISOLONE
     Dosage: 4 TAB, QD (4TAB (20MG)/DAY)
     Route: 048
  11. NOVORAPID [Suspect]
     Active Substance: INSULIN ASPART
     Dosage: 22 U, QD ((6-6-10 UNITS/DAY)
     Route: 058
     Dates: start: 20181128
  12. TRESIBA CHU FLEXTOUCH [Suspect]
     Active Substance: INSULIN DEGLUDEC
     Indication: TYPE 1 DIABETES MELLITUS
     Dosage: 19 U, QD (AT 21:00)
     Route: 058
     Dates: start: 20150109
  13. NOVORAPID [Suspect]
     Active Substance: INSULIN ASPART
     Indication: TYPE 1 DIABETES MELLITUS
     Dosage: 42 U, QD (6-12-24U/DAY)
     Route: 058
  14. LANSOPRAZOLE. [Concomitant]
     Active Substance: LANSOPRAZOLE
     Dosage: 1 TAB, QD (1TAB (15MG)/DAY)
     Route: 048

REACTIONS (1)
  - Hypoglycaemic unconsciousness [Recovered/Resolved]

NARRATIVE: CASE EVENT DATE: 20181124
